FAERS Safety Report 11423103 (Version 1)
Quarter: 2015Q3

REPORT INFORMATION
  Report Type: Spontaneous
  Country: US (occurrence: US)
  Receive Date: 20150827
  Receipt Date: 20150827
  Transmission Date: 20151125
  Serious: No
  Sender: FDA-Public Use
  Company Number: US-GLAXOSMITHKLINE-US2015GSK122459

PATIENT
  Sex: Female

DRUGS (4)
  1. VOTRIENT [Suspect]
     Active Substance: PAZOPANIB HYDROCHLORIDE
     Indication: METASTATIC RENAL CELL CARCINOMA
     Dosage: 800 MG, QD
     Route: 048
     Dates: start: 20150817
  2. MORPHINE [Concomitant]
     Active Substance: MORPHINE
     Dosage: 100 MG, BID
  3. ROXICODONE [Concomitant]
     Active Substance: OXYCODONE HYDROCHLORIDE
     Dosage: 30 MG, Q3H PRN
  4. OXYCODONE [Concomitant]
     Active Substance: OXYCODONE

REACTIONS (3)
  - Fatigue [Unknown]
  - Abdominal pain [Unknown]
  - Somnolence [Unknown]
